FAERS Safety Report 10227288 (Version 1)
Quarter: 2014Q2

REPORT INFORMATION
  Report Type: Spontaneous
  Country: TR (occurrence: None)
  Receive Date: 20140606
  Receipt Date: 20140606
  Transmission Date: 20141212
  Serious: Yes (Hospitalization)
  Sender: FDA-Public Use
  Company Number: VAL_03166_2014

PATIENT
  Age: 63 Year
  Sex: Female

DRUGS (8)
  1. METOPROLOL [Suspect]
     Indication: HYPERTENSION
     Dosage: 2 WEEKS 1 DAY UNTIL NOT CONTINUING
  2. PAROXETINE [Suspect]
     Indication: DEPRESSION
     Dosage: 1 YEAR UNITL NOT CONTINUING
  3. ALPRAZOLAM [Concomitant]
  4. ACETYLSALICYLIC ACID [Concomitant]
  5. AMLODIPINE [Concomitant]
  6. CLONAZEPAM [Concomitant]
  7. ESCITALOPRAM [Concomitant]
  8. DILTIAZEM [Concomitant]

REACTIONS (5)
  - Presyncope [None]
  - Atrioventricular block complete [None]
  - Blood pressure decreased [None]
  - Drug interaction [None]
  - Bradyarrhythmia [None]
